FAERS Safety Report 26139843 (Version 1)
Quarter: 2025Q4

REPORT INFORMATION
  Report Type: Spontaneous
  Country: EU (occurrence: EU)
  Receive Date: 20251210
  Receipt Date: 20251210
  Transmission Date: 20260117
  Serious: Yes (Other)
  Sender: UCB
  Company Number: None

PATIENT
  Age: 87 Year
  Weight: 88.7 kg

DRUGS (15)
  1. KEPPRA [Suspect]
     Active Substance: LEVETIRACETAM
     Indication: Epilepsy
  2. KEPPRA [Suspect]
     Active Substance: LEVETIRACETAM
     Dosage: 500 MILLIGRAM
  3. KEPPRA [Suspect]
     Active Substance: LEVETIRACETAM
     Dosage: 500 MILLIGRAM
  4. FUROSEMIDE [Concomitant]
     Active Substance: FUROSEMIDE
     Indication: Product used for unknown indication
  5. PRAMIPEXOLE DIHYDROCHLORIDE [Concomitant]
     Active Substance: PRAMIPEXOLE DIHYDROCHLORIDE
     Indication: Tremor
  6. FOLIC ACID [Concomitant]
     Active Substance: FOLIC ACID
     Indication: Vitamin supplementation
  7. PANTOPRAZOLE [Concomitant]
     Active Substance: PANTOPRAZOLE
     Indication: Product used for unknown indication
  8. PROPRANOLOL [Concomitant]
     Active Substance: PROPRANOLOL HYDROCHLORIDE
     Indication: Tremor
  9. BROMAZEPAM [Concomitant]
     Active Substance: BROMAZEPAM
     Indication: Tremor
  10. VENLAFAXINE [Concomitant]
     Active Substance: VENLAFAXINE HYDROCHLORIDE
     Indication: Depression
     Dosage: LP
  11. BILASTINE [Concomitant]
     Active Substance: BILASTINE
     Indication: Product used for unknown indication
  12. DUPHALAC [Concomitant]
     Active Substance: LACTULOSE
     Indication: Constipation
  13. KARDEGIC [Concomitant]
     Active Substance: ASPIRIN DL-LYSINE
     Indication: Arterial disorder
  14. ALONEST 1,5 mg/mL, solution pour pulv?risation nasale [Concomitant]
     Indication: Product used for unknown indication
  15. MINERAL OIL [Concomitant]
     Active Substance: MINERAL OIL
     Indication: Constipation

REACTIONS (2)
  - Hypothermia [Recovered/Resolved]
  - Bradycardia [Recovered/Resolved]
